FAERS Safety Report 7269536-2 (Version None)
Quarter: 2011Q1

REPORT INFORMATION
  Report Type: 
  Country: None (occurrence: None)
  Receive Date: 20110202
  Receipt Date: 20110119
  Transmission Date: 20110831
  Serious: Yes (Other)
  Sender: FDA-Public Use
  Company Number: US-RANBAXY-2010RR-40581

PATIENT
  Sex: Female

DRUGS (14)
  1. METHYLPREDNISOLONE [Suspect]
     Indication: PRODUCT USED FOR UNKNOWN INDICATION
     Route: 065
  2. PREDNISOLONE [Suspect]
     Indication: RHINITIS ALLERGIC
     Dosage: 20 MG, QD
     Route: 065
  3. SINGULAIR [Concomitant]
  4. DARVOCET-N 100 [Concomitant]
  5. REGLAN [Concomitant]
  6. COZAAR [Concomitant]
  7. LEVAQUIN [Suspect]
     Indication: RESPIRATORY TRACT INFECTION
  8. ZEITA [Concomitant]
  9. ZELNORM [Concomitant]
  10. LEVAQUIN [Suspect]
     Indication: BRONCHITIS
  11. LEVAQUIN [Suspect]
     Indication: SINUSITIS
     Dosage: UNK
     Route: 048
     Dates: start: 20060801
  12. SYNTHROID [Concomitant]
  13. CIPROFLOXACIN [Suspect]
     Indication: INFECTION
  14. PREDNISOLONE [Suspect]
     Dosage: 50 MG, QD
     Route: 048

REACTIONS (2)
  - TENDONITIS [None]
  - EPICONDYLITIS [None]
